FAERS Safety Report 5844208-7 (Version None)
Quarter: 2008Q3

REPORT INFORMATION
  Report Type: 
  Country: None (occurrence: None)
  Receive Date: 20080813
  Receipt Date: 20080805
  Transmission Date: 20090109
  Serious: Yes (Death, Hospitalization)
  Sender: FDA-Public Use
  Company Number: FI-SANOFI-SYNTHELABO-D01200801405

PATIENT
  Sex: Male
  Weight: 70 kg

DRUGS (6)
  1. CLOPIDOGREL [Suspect]
     Indication: ACUTE CORONARY SYNDROME
     Dosage: 300 MG (+PLACEBO) D1 FOLLOWED BY 75 MG (+PLACEBO) D2 TO D7; 75 MG FROM D8 TO 30
     Route: 048
  2. PERINDOPRIL ERBUMINE [Concomitant]
  3. EMCONCOR [Concomitant]
     Dosage: 5 MG
     Route: 065
  4. CLOPIDOGREL [Suspect]
     Indication: ACUTE CORONARY SYNDROME
     Dosage: 600 MG LD D1 FOLLOWED BY 150 MG FROM D2 TO D7; 75 MG FROM D8 TO 30
     Route: 048
     Dates: start: 20080215
  5. ASA HIGH DOSE [Concomitant]
     Indication: ACUTE CORONARY SYNDROME
     Dosage: AT LEAST 300 MG D1; 300-325 MG FROM D2 TO D30
     Route: 048
     Dates: start: 20080215
  6. LMWH [Concomitant]

REACTIONS (5)
  - FALL [None]
  - INTRACRANIAL HAEMATOMA [None]
  - PULMONARY EMBOLISM [None]
  - PUNCTURE SITE HAEMORRHAGE [None]
  - VASCULAR PSEUDOANEURYSM [None]
